FAERS Safety Report 7461212-6 (Version None)
Quarter: 2011Q2

REPORT INFORMATION
  Report Type: 
  Country: None (occurrence: None)
  Receive Date: 20110505
  Receipt Date: 20110426
  Transmission Date: 20111010
  Serious: Yes (Hospitalization)
  Sender: FDA-Public Use
  Company Number: FR-ASTRAZENECA-2011SE24986

PATIENT
  Age: 69 Year
  Sex: Male

DRUGS (9)
  1. LERCAN [Concomitant]
     Dosage: LONG LASTING
     Route: 048
  2. NORSET [Concomitant]
     Dosage: LONG LASTING
     Route: 048
  3. ZOPICLONE [Concomitant]
     Dosage: LONG LASTING
     Route: 048
  4. MOPRAL [Suspect]
     Indication: PROPHYLAXIS AGAINST GASTROINTESTINAL ULCER
     Route: 048
     Dates: start: 20050101, end: 20100101
  5. KARDEGIC [Concomitant]
     Dosage: LONG LASTING
     Route: 048
  6. TAHOR [Concomitant]
     Dosage: LONG LASTING
     Route: 048
  7. GALANTAMINE HYDROBROMIDE [Concomitant]
     Dosage: LONG LASTING
     Route: 048
  8. OXAZEPAM [Concomitant]
     Dosage: LONG LASTING
     Route: 048
  9. RISPERDAL [Concomitant]
     Dosage: LONG LASTING
     Route: 048

REACTIONS (2)
  - HYPOCALCAEMIA [None]
  - HYPOMAGNESAEMIA [None]
